FAERS Safety Report 7772815-3 (Version None)
Quarter: 2011Q3

REPORT INFORMATION
  Report Type: 
  Country: None (occurrence: None)
  Receive Date: 20110922
  Receipt Date: 20100330
  Transmission Date: 20111222
  Serious: No
  Sender: FDA-Public Use
  Company Number: US-ASTRAZENECA-2007UW17028

PATIENT
  Age: 192 Month
  Sex: Female
  Weight: 68 kg

DRUGS (14)
  1. RISPERDAL [Suspect]
     Indication: POST-TRAUMATIC STRESS DISORDER
     Route: 048
     Dates: start: 20010601, end: 20010701
  2. CLOZAPINE [Concomitant]
  3. ZOLOFT [Concomitant]
     Dates: start: 20050101
  4. SEROQUEL [Suspect]
     Dosage: 25 MG - 100 MG
     Route: 048
     Dates: start: 20030219, end: 20051028
  5. SEROQUEL [Suspect]
     Dosage: 25 MG - 100 MG
     Route: 048
     Dates: start: 20030219, end: 20051028
  6. ABILIFY [Concomitant]
  7. SEROQUEL [Suspect]
     Indication: POST-TRAUMATIC STRESS DISORDER
     Dosage: 25 MG - 100 MG
     Route: 048
     Dates: start: 20030201, end: 20051001
  8. CELEXA [Concomitant]
     Dates: start: 20010101
  9. ZYPREXA [Suspect]
     Indication: POST-TRAUMATIC STRESS DISORDER
     Dosage: 2.5 MG -10 MG
     Route: 048
     Dates: start: 20010601, end: 20021101
  10. SINGULAIR [Concomitant]
     Dates: start: 20050101
  11. SEROQUEL [Suspect]
     Indication: DEPRESSION
     Dosage: 25 MG - 100 MG
     Route: 048
     Dates: start: 20030201, end: 20051001
  12. ZYPREXA [Suspect]
     Indication: DEPRESSION
     Dosage: 2.5 MG -10 MG
     Route: 048
     Dates: start: 20010601, end: 20021101
  13. HALDOL [Concomitant]
  14. RISPERDAL [Suspect]
     Indication: DEPRESSION
     Route: 048
     Dates: start: 20010601, end: 20010701

REACTIONS (3)
  - DIABETES MELLITUS [None]
  - ADVERSE DRUG REACTION [None]
  - WEIGHT INCREASED [None]
